FAERS Safety Report 5715796-6 (Version None)
Quarter: 2008Q2

REPORT INFORMATION
  Report Type: 
  Country: None (occurrence: None)
  Receive Date: 20080422
  Receipt Date: 20080410
  Transmission Date: 20081010
  Serious: Yes (Other)
  Sender: FDA-Public Use
  Company Number: 2008023346

PATIENT
  Age: 38 Year
  Sex: Female
  Weight: 75 kg

DRUGS (4)
  1. FRAGMIN [Suspect]
     Indication: THROMBOSIS PROPHYLAXIS
     Dosage: EVERY DAY, SUBCUTANEOUS
     Route: 058
     Dates: start: 20070521
  2. ZOLOFT [Concomitant]
  3. MARCUMAR [Concomitant]
  4. ZOLOFT [Concomitant]

REACTIONS (7)
  - ASTHENIA [None]
  - CARDIAC DISORDER [None]
  - GENERAL PHYSICAL HEALTH DETERIORATION [None]
  - HEPATITIS [None]
  - HYPERHIDROSIS [None]
  - LUNG DISORDER [None]
  - VERTIGO POSITIONAL [None]
